FAERS Safety Report 13341451 (Version 1)
Quarter: 2017Q1

REPORT INFORMATION
  Report Type: Spontaneous
  Country: GB (occurrence: GB)
  Receive Date: 20170316
  Receipt Date: 20170316
  Transmission Date: 20170428
  Serious: Yes (Other)
  Sender: FDA-Public Use
  Company Number: GB-DRREDDYS-GER/UKI/17/0087850

PATIENT
  Age: 25 Year
  Sex: Female
  Weight: 64 kg

DRUGS (1)
  1. FEXOFENADINE [Suspect]
     Active Substance: FEXOFENADINE\FEXOFENADINE HYDROCHLORIDE
     Indication: DERMATITIS ATOPIC
     Dates: start: 20161128, end: 20161226

REACTIONS (1)
  - Acne [Recovered/Resolved]

NARRATIVE: CASE EVENT DATE: 20161128
